FAERS Safety Report 10260435 (Version 7)
Quarter: 2015Q1

REPORT INFORMATION
  Report Type: Spontaneous
  Country: US (occurrence: US)
  Receive Date: 20140625
  Receipt Date: 20150306
  Transmission Date: 20150720
  Serious: Yes (Congenital Anomaly, Other)
  Sender: FDA-Public Use
  Company Number: US-ELI_LILLY_AND_COMPANY-US201406007807

PATIENT
  Age: 0 Day

DRUGS (3)
  1. VICODIN [Concomitant]
     Active Substance: ACETAMINOPHEN\HYDROCODONE BITARTRATE
     Indication: PAIN
     Dosage: 1 DF, PRN
     Route: 064
  2. PRENATAL VITAMINS                  /08195401/ [Concomitant]
     Indication: PRENATAL CARE
     Dosage: 0.8 MG, QD
     Route: 064
  3. PROZAC [Suspect]
     Active Substance: FLUOXETINE HYDROCHLORIDE
     Indication: DEPRESSION
     Dosage: 20 MG, QD
     Route: 064
     Dates: start: 1994

REACTIONS (13)
  - Micrognathia [Unknown]
  - Cleft lip [Recovered/Resolved]
  - Speech disorder [Unknown]
  - Cerebral ventricle dilatation [Unknown]
  - Respiratory distress [Recovered/Resolved]
  - Cleft palate [Recovered/Resolved]
  - Plagiocephaly [Unknown]
  - Premature baby [Recovered/Resolved]
  - Foetal exposure during pregnancy [Recovered/Resolved]
  - Synostosis [Recovered/Resolved]
  - Brachycephaly [Recovering/Resolving]
  - Apgar score low [Recovered/Resolved]
  - Craniosynostosis [Unknown]

NARRATIVE: CASE EVENT DATE: 19990507
